FAERS Safety Report 10502778 (Version 2)
Quarter: 2014Q4

REPORT INFORMATION
  Report Type: Spontaneous
  Country: JP (occurrence: None)
  Receive Date: 20141003
  Receipt Date: 20141030
  Transmission Date: 20150528
  Serious: Yes (Hospitalization)
  Sender: FDA-Public Use
  Company Number: 2014JP000614

PATIENT
  Age: 68 Year
  Sex: Male
  Weight: 65.2 kg

DRUGS (7)
  1. SELOKEN /00376902/ (METOPROLOL TARTRATE) [Concomitant]
  2. FERRIC CITRATE COORDINATION COMPLEX [Suspect]
     Active Substance: TETRAFERRIC TRICITRATE DECAHYDRATE
     Indication: CHRONIC KIDNEY DISEASE
     Dosage: UNK, ORAL
     Route: 048
     Dates: start: 20140717, end: 20140818
  3. TANKARU (CALCIUM CARBONATE) [Concomitant]
  4. ALLOPURINOL (ALLOPURINOL) [Concomitant]
     Active Substance: ALLOPURINOL
  5. NITOROL R (ISOSORBIDE DINITRATE) [Concomitant]
  6. GASTER D (FAMOTIDINE) [Concomitant]
  7. BAYASPIRIN (ACETYLSALICYLIC ACID) [Concomitant]

REACTIONS (5)
  - Jaundice [None]
  - Drug-induced liver injury [None]
  - Pruritus generalised [None]
  - Hepatic enzyme increased [None]
  - Blood bilirubin increased [None]

NARRATIVE: CASE EVENT DATE: 20140902
